FAERS Safety Report 11368483 (Version 1)
Quarter: 2015Q3

REPORT INFORMATION
  Report Type: Spontaneous
  Country: US (occurrence: None)
  Receive Date: 20150811
  Receipt Date: 20150811
  Transmission Date: 20151125
  Serious: Yes (Other)
  Sender: FDA-Public Use
  Company Number: None

PATIENT
  Age: 66 Year
  Sex: Female
  Weight: 58.97 kg

DRUGS (4)
  1. D3 [Concomitant]
     Active Substance: 25-HYDROXYCHOLECALCIFEROL, 5-TRANS-
  2. LIALDA [Concomitant]
     Active Substance: MESALAMINE
  3. BUPROPION HYDROCHLORIDE ER [Suspect]
     Active Substance: BUPROPION HYDROCHLORIDE
     Indication: DEPRESSION
     Route: 048
     Dates: start: 20150706, end: 20150810
  4. ZYTEC [Concomitant]

REACTIONS (2)
  - Crying [None]
  - Depression [None]

NARRATIVE: CASE EVENT DATE: 20150810
